FAERS Safety Report 6250506-8 (Version None)
Quarter: 2009Q2

REPORT INFORMATION
  Report Type: 
  Country: None (occurrence: None)
  Receive Date: 20090630
  Receipt Date: 20090619
  Transmission Date: 20091009
  Serious: Yes (Hospitalization, Other)
  Sender: FDA-Public Use
  Company Number: CN-ROCHE-639266

PATIENT
  Age: 82 Year
  Sex: Male
  Weight: 50 kg

DRUGS (2)
  1. XELODA [Suspect]
     Indication: GASTRIC CANCER
     Route: 048
     Dates: start: 20081030, end: 20090101
  2. CHINESE MEDICINE NOS [Concomitant]
     Dosage: UNSPECIFIED CHINESE HERBAL MEDICINE.
     Dates: start: 20090101

REACTIONS (4)
  - LUNG INFECTION [None]
  - METASTASES TO KIDNEY [None]
  - METASTASES TO LIVER [None]
  - PIGMENTATION DISORDER [None]
